FAERS Safety Report 6917577-4 (Version None)
Quarter: 2010Q3

REPORT INFORMATION
  Report Type: 
  Country: None (occurrence: None)
  Receive Date: 20100805
  Receipt Date: 20100723
  Transmission Date: 20110219
  Serious: Yes (Other)
  Sender: FDA-Public Use
  Company Number: DE-GDP-10408620

PATIENT
  Sex: Female

DRUGS (1)
  1. METVIX (METHYL AMINOLEVULINATE HYDROCHLORIDE) 16% [Suspect]
     Indication: BASAL CELL CARCINOMA
     Dosage: (1 DF TOPICAL)
     Route: 061
     Dates: start: 20100716, end: 20100716

REACTIONS (2)
  - ANGIOEDEMA [None]
  - URTICARIA [None]
